FAERS Safety Report 5352727-5 (Version None)
Quarter: 2007Q2

REPORT INFORMATION
  Report Type: 
  Country: None (occurrence: None)
  Receive Date: 20070611
  Receipt Date: 20070530
  Transmission Date: 20071010
  Serious: Yes (Hospitalization, Other)
  Sender: FDA-Public Use
  Company Number: FR-PFIZER INC-2007036588

PATIENT
  Sex: Male
  Weight: 71 kg

DRUGS (4)
  1. CHAMPIX [Suspect]
  2. VALPROATE SODIUM [Concomitant]
     Route: 048
  3. SYMBICORT [Concomitant]
  4. SPIRIVA [Concomitant]

REACTIONS (6)
  - DELIRIUM [None]
  - HALLUCINATION, AUDITORY [None]
  - INCOHERENT [None]
  - INSOMNIA [None]
  - MENTAL IMPAIRMENT [None]
  - PERSECUTORY DELUSION [None]
